FAERS Safety Report 21617419 (Version 1)
Quarter: 2022Q4

REPORT INFORMATION
  Report Type: Spontaneous
  Country: CN (occurrence: CN)
  Receive Date: 20221119
  Receipt Date: 20221119
  Transmission Date: 20230112
  Serious: Yes (Other)
  Sender: FDA-Public Use
  Company Number: None

PATIENT
  Age: 1 Year
  Sex: Male
  Weight: 7.3 kg

DRUGS (4)
  1. CYCLOPHOSPHAMIDE [Suspect]
     Active Substance: CYCLOPHOSPHAMIDE
     Indication: Retroperitoneal neoplasm
     Dosage: 0.4 G, QD, DILUTED WITH 4:1 GLUCOSE AND SODIUM CHLORIDE (100 ML)
     Route: 041
     Dates: start: 20220825, end: 20220825
  2. DEXTROSE\SODIUM CHLORIDE [Suspect]
     Active Substance: DEXTROSE\SODIUM CHLORIDE
     Indication: Medication dilution
     Dosage: 100 ML, QD, USED TO DILUTE CYCLOPHOSPHAMIDE (0.4 G)
     Route: 041
     Dates: start: 20220825, end: 20220825
  3. SODIUM CHLORIDE [Suspect]
     Active Substance: SODIUM CHLORIDE
     Indication: Medication dilution
     Dosage: 250 ML, QD, USED TO DILUTE EPIRUBICIN (6 MG)
     Route: 041
     Dates: start: 20220825, end: 20220827
  4. EPIRUBICIN [Suspect]
     Active Substance: EPIRUBICIN
     Indication: Retroperitoneal neoplasm
     Dosage: 6 MG, QD, DILUTED WITH 0.9 % NS (250 ML)
     Route: 041
     Dates: start: 20220825, end: 20220827

REACTIONS (1)
  - Myelosuppression [Recovering/Resolving]

NARRATIVE: CASE EVENT DATE: 20220901
